FAERS Safety Report 4853697-6 (Version None)
Quarter: 2005Q4

REPORT INFORMATION
  Report Type: 
  Country: None (occurrence: None)
  Receive Date: 20051212
  Receipt Date: 20051128
  Transmission Date: 20060501
  Serious: Yes (Hospitalization)
  Sender: FDA-Public Use
  Company Number: JP200512000200

PATIENT
  Age: 79 Year
  Sex: Male
  Weight: 45 kg

DRUGS (3)
  1. GEMZAR [Suspect]
     Indication: MALIGNANT NEOPLASM OF RENAL PELVIS
     Dosage: 1000 MG, OTHER INTRAVENOUS
     Route: 042
     Dates: start: 20051114, end: 20051121
  2. WARFARIN SODIUM [Concomitant]
  3. PENTAZOCINE LACTATE [Concomitant]

REACTIONS (2)
  - COAGULATION TIME PROLONGED [None]
  - HAEMORRHAGIC DIATHESIS [None]
